FAERS Safety Report 20830148 (Version 3)
Quarter: 2022Q2

REPORT INFORMATION
  Report Type: Spontaneous
  Country: US (occurrence: US)
  Receive Date: 20220514
  Receipt Date: 20220617
  Transmission Date: 20220721
  Serious: Yes (Disabling, Other)
  Sender: FDA-Public Use
  Company Number: US-TEVA-2022-US-2035393

PATIENT
  Age: 67 Year
  Sex: Female
  Weight: 57.15 kg

DRUGS (5)
  1. COPAXONE [Suspect]
     Active Substance: GLATIRAMER ACETATE
     Indication: Multiple sclerosis
     Route: 065
  2. COPAXONE [Suspect]
     Active Substance: GLATIRAMER ACETATE
     Route: 065
  3. LITHIUM CARBONATE [Concomitant]
     Active Substance: LITHIUM CARBONATE
     Dosage: 450 MILLIGRAM DAILY;
     Route: 065
  4. RISPERIDONE [Concomitant]
     Active Substance: RISPERIDONE
     Dosage: 80 MILLIGRAM DAILY;
     Route: 065
  5. ASPIRIN [Concomitant]
     Active Substance: ASPIRIN
     Route: 065

REACTIONS (20)
  - Disability [Unknown]
  - Paralysis [Recovered/Resolved]
  - Seizure [Unknown]
  - Needle issue [Unknown]
  - Injection site swelling [Unknown]
  - Injection site induration [Unknown]
  - Injection site discolouration [Not Recovered/Not Resolved]
  - Feeling abnormal [Unknown]
  - Condition aggravated [Unknown]
  - Hypokinesia [Unknown]
  - Headache [Unknown]
  - Product quality issue [Unknown]
  - Needle issue [Unknown]
  - Mydriasis [Unknown]
  - Speech disorder [Unknown]
  - Sensory disturbance [Unknown]
  - Asthenia [Unknown]
  - Blood pressure increased [Unknown]
  - Insomnia [Recovered/Resolved]
  - Injection site pain [Recovered/Resolved]

NARRATIVE: CASE EVENT DATE: 20220429
